FAERS Safety Report 11574424 (Version 1)
Quarter: 2015Q3

REPORT INFORMATION
  Report Type: Spontaneous
  Country: US (occurrence: None)
  Receive Date: 20150929
  Receipt Date: 20150929
  Transmission Date: 20151125
  Serious: No
  Sender: FDA-Public Use
  Company Number: None

PATIENT
  Age: 84 Year
  Sex: Male
  Weight: 86.18 kg

DRUGS (10)
  1. FLOMAX [Concomitant]
     Active Substance: TAMSULOSIN HYDROCHLORIDE
  2. MULTI VITAMIN [Concomitant]
     Active Substance: VITAMINS
  3. KEPPRA [Concomitant]
     Active Substance: LEVETIRACETAM
  4. PROLIA [Suspect]
     Active Substance: DENOSUMAB
     Indication: OSTEOPOROSIS
     Dosage: 6 MONTHS
     Dates: start: 20150615, end: 20150615
  5. PRAVACHOL [Concomitant]
     Active Substance: PRAVASTATIN SODIUM
  6. CALCIUM WITH VIT.D. [Concomitant]
  7. TOPROL TARTRATE [Concomitant]
     Active Substance: METOPROLOL TARTRATE
  8. LEVOTHYROXINE. [Concomitant]
     Active Substance: LEVOTHYROXINE
  9. ALTACE [Concomitant]
     Active Substance: RAMIPRIL
  10. ASPIRIN. [Concomitant]
     Active Substance: ASPIRIN

REACTIONS (7)
  - Pain in jaw [None]
  - Myalgia [None]
  - Oropharyngeal pain [None]
  - Musculoskeletal pain [None]
  - Back pain [None]
  - Arthralgia [None]
  - Muscle spasms [None]

NARRATIVE: CASE EVENT DATE: 20150615
